FAERS Safety Report 7200169-X (Version None)
Quarter: 2010Q4

REPORT INFORMATION
  Report Type: 
  Country: None (occurrence: None)
  Receive Date: 20101215
  Receipt Date: 20101201
  Transmission Date: 20110411
  Serious: No
  Sender: FDA-Public Use
  Company Number: 2010-01026

PATIENT
  Age: 79 Month
  Sex: Male
  Weight: 122.4712 kg

DRUGS (13)
  1. ZICAM COLD REMEDY GEL SWABS [Suspect]
     Dosage: SPORADIC X 2 YEARS, APR 3 YRS AGO-APX 1 YR AGO
  2. COUMADIN [Concomitant]
  3. LISINOPRIL [Concomitant]
  4. HYDROCHLOROTHIAZIDE [Concomitant]
  5. AVALIDE [Concomitant]
  6. DILANTIN [Concomitant]
  7. PROTONIX [Concomitant]
  8. TERAZOSIN HCL [Concomitant]
  9. DOCUSATE [Concomitant]
  10. HYDROCODONE [Concomitant]
  11. MVP [Concomitant]
  12. SIMVASTATIN [Concomitant]
  13. SILENT NIGHT E VALERIAN [Concomitant]

REACTIONS (2)
  - AGEUSIA [None]
  - ANOSMIA [None]
